FAERS Safety Report 8987698 (Version 1)
Quarter: 2012Q4

REPORT INFORMATION
  Report Type: 
  Country: CA (occurrence: CA)
  Receive Date: 20121227
  Receipt Date: 20121227
  Transmission Date: 20130627
  Serious: Yes (Hospitalization, Other)
  Sender: FDA-Public Use
  Company Number: PHHY2012CA119670

PATIENT
  Age: 57 Year
  Sex: Female

DRUGS (6)
  1. DILTIAZEM [Suspect]
     Dosage: 360 mg, UNK
  2. BISOPROLOL [Concomitant]
     Dosage: 5 mg, UNK
  3. CANDESARTAN W/HYDROCHLOROTHIAZIDE [Concomitant]
  4. ACETAMINOPHEN/CAFFEINE/CODEINE [Concomitant]
  5. DIMENHYDRINATE [Concomitant]
  6. ETHANOL [Concomitant]

REACTIONS (10)
  - Cardiogenic shock [Recovered/Resolved]
  - Hypotension [Recovered/Resolved]
  - Sinus bradycardia [Recovered/Resolved]
  - Urine output decreased [Recovered/Resolved]
  - Haemodynamic instability [Recovered/Resolved]
  - Chest pain [Recovered/Resolved]
  - Troponin T increased [Unknown]
  - Intentional overdose [Recovered/Resolved]
  - Drug level increased [Recovered/Resolved]
  - Toxicity to various agents [Recovered/Resolved]
